FAERS Safety Report 9029011 (Version 1)
Quarter: 2013Q1

REPORT INFORMATION
  Report Type: Spontaneous
  Country: IL (occurrence: IL)
  Receive Date: 20130122
  Receipt Date: 20130122
  Transmission Date: 20140127
  Serious: Yes (Other)
  Sender: FDA-Public Use
  Company Number: IL-ROCHE-1181050

PATIENT
  Age: 26 Year
  Sex: Female

DRUGS (4)
  1. HERCEPTIN [Suspect]
     Indication: BREAST CANCER
     Route: 065
     Dates: start: 20110501, end: 20120501
  2. DOXORUBICIN [Suspect]
     Indication: BREAST CANCER
     Route: 065
  3. TAXOL [Suspect]
     Indication: BREAST CANCER
     Route: 065
  4. CYCLOPHOSPHAMIDE [Suspect]
     Indication: BREAST CANCER
     Route: 065

REACTIONS (1)
  - Disease recurrence [Unknown]
